FAERS Safety Report 7521578-5 (Version None)
Quarter: 2011Q2

REPORT INFORMATION
  Report Type: 
  Country: None (occurrence: None)
  Receive Date: 20110603
  Receipt Date: 20110531
  Transmission Date: 20111010
  Serious: No
  Sender: FDA-Public Use
  Company Number: US-PFIZER INC-2011118733

PATIENT
  Sex: Female

DRUGS (3)
  1. COZAAR [Concomitant]
     Indication: BLOOD PRESSURE ABNORMAL
  2. EFFEXOR [Suspect]
     Indication: HOT FLUSH
     Dosage: 75 MG, UNK
  3. DILTIAZEM [Concomitant]
     Indication: BLOOD PRESSURE ABNORMAL

REACTIONS (7)
  - BLOOD PRESSURE INCREASED [None]
  - INFLUENZA LIKE ILLNESS [None]
  - EAR DISCOMFORT [None]
  - NAUSEA [None]
  - DIZZINESS [None]
  - EYE DISORDER [None]
  - BALANCE DISORDER [None]
